FAERS Safety Report 16330984 (Version 1)
Quarter: 2019Q2

REPORT INFORMATION
  Report Type: Spontaneous
  Country: US (occurrence: US)
  Receive Date: 20190517
  Receipt Date: 20190517
  Transmission Date: 20190711
  Serious: No
  Sender: FDA-Public Use
  Company Number: None

PATIENT
  Sex: Female

DRUGS (1)
  1. ZEJULA [Suspect]
     Active Substance: NIRAPARIB
     Indication: OVARIAN CANCER RECURRENT
     Dates: start: 20180501

REACTIONS (8)
  - Carbohydrate antigen 125 increased [None]
  - Arthralgia [None]
  - Urinary tract infection [None]
  - Nasopharyngitis [None]
  - Full blood count decreased [None]
  - Dry mouth [None]
  - Dysgeusia [None]
  - Kidney infection [None]
